FAERS Safety Report 25302918 (Version 3)
Quarter: 2025Q2

REPORT INFORMATION
  Report Type: Report from Study
  Country: BR (occurrence: BR)
  Receive Date: 20250512
  Receipt Date: 20250617
  Transmission Date: 20250717
  Serious: Yes (Life-Threatening, Hospitalization, Other)
  Sender: AMGEN
  Company Number: BR-AMGEN-BRASL2025056956

PATIENT
  Age: 45 Year
  Sex: Female

DRUGS (2)
  1. VECTIBIX [Suspect]
     Active Substance: PANITUMUMAB
     Indication: Colorectal cancer metastatic
     Route: 065
     Dates: start: 20221004
  2. VECTIBIX [Suspect]
     Active Substance: PANITUMUMAB
     Route: 065
     Dates: start: 20250305

REACTIONS (18)
  - Tachycardia [Not Recovered/Not Resolved]
  - Urinary tract infection [Not Recovered/Not Resolved]
  - Nephrostomy [Recovering/Resolving]
  - Swelling [Not Recovered/Not Resolved]
  - Ureteral stent removal [Not Recovered/Not Resolved]
  - Dysphagia [Recovering/Resolving]
  - Intestinal obstruction [Recovering/Resolving]
  - Asthenia [Recovering/Resolving]
  - Hepatitis [Recovering/Resolving]
  - Influenza [Not Recovered/Not Resolved]
  - Decreased immune responsiveness [Recovering/Resolving]
  - Skin lesion [Not Recovered/Not Resolved]
  - Nausea [Recovering/Resolving]
  - Vomiting [Recovering/Resolving]
  - Acne [Not Recovered/Not Resolved]
  - Alopecia [Recovering/Resolving]
  - Stomatitis [Recovering/Resolving]
  - Frequent bowel movements [Recovering/Resolving]

NARRATIVE: CASE EVENT DATE: 20250101
